FAERS Safety Report 9649049 (Version 12)
Quarter: 2017Q3

REPORT INFORMATION
  Report Type: Spontaneous
  Country: CA (occurrence: CA)
  Receive Date: 20131028
  Receipt Date: 20170914
  Transmission Date: 20171128
  Serious: Yes (Hospitalization, Other)
  Sender: FDA-Public Use
  Company Number: CA-ROCHE-1295362

PATIENT
  Age: 57 Year
  Sex: Female

DRUGS (7)
  1. XOLAIR [Suspect]
     Active Substance: OMALIZUMAB
     Dosage: UNK
     Route: 058
     Dates: start: 20170630
  2. XOLAIR [Suspect]
     Active Substance: OMALIZUMAB
     Dosage: UNK
     Route: 058
     Dates: start: 20170828
  3. REACTINE (CANADA) [Concomitant]
     Active Substance: CETIRIZINE HYDROCHLORIDE
     Indication: PRODUCT USED FOR UNKNOWN INDICATION
     Dosage: UNK
     Route: 065
  4. SYMBICORT [Concomitant]
     Active Substance: BUDESONIDE\FORMOTEROL FUMARATE DIHYDRATE
     Indication: PRODUCT USED FOR UNKNOWN INDICATION
     Dosage: UNK
     Route: 065
  5. XOLAIR [Suspect]
     Active Substance: OMALIZUMAB
     Indication: ASTHMA
     Route: 058
     Dates: start: 20080131
  6. PANTOLOC [Concomitant]
     Active Substance: PANTOPRAZOLE SODIUM
     Indication: PRODUCT USED FOR UNKNOWN INDICATION
     Dosage: UNK
     Route: 065
  7. THYROXINE [Concomitant]
     Active Substance: LEVOTHYROXINE
     Indication: PRODUCT USED FOR UNKNOWN INDICATION
     Route: 065

REACTIONS (21)
  - Shock [Unknown]
  - Pain [Unknown]
  - Influenza [Unknown]
  - Pain in extremity [Unknown]
  - Dust allergy [Unknown]
  - Serum sickness [Unknown]
  - Pulmonary hypertension [Unknown]
  - Malaise [Unknown]
  - Hypersensitivity [Unknown]
  - Oropharyngeal pain [Unknown]
  - Pulmonary fibrosis [Unknown]
  - Sleep disorder [Unknown]
  - General physical health deterioration [Unknown]
  - Asthma [Unknown]
  - Nasopharyngitis [Unknown]
  - Perfume sensitivity [Unknown]
  - Frustration tolerance decreased [Unknown]
  - Decreased activity [Unknown]
  - Muscular weakness [Unknown]
  - Sepsis [Unknown]
  - Fatigue [Unknown]

NARRATIVE: CASE EVENT DATE: 20080131
